FAERS Safety Report 8837602 (Version 1)
Quarter: 2012Q4

REPORT INFORMATION
  Report Type: 
  Country: US (occurrence: US)
  Receive Date: 20121012
  Receipt Date: 20121012
  Transmission Date: 20130627
  Serious: Yes (Other)
  Sender: FDA-Public Use
  Company Number: US-ROCHE-1139981

PATIENT
  Sex: Female

DRUGS (12)
  1. NUTROPIN AQ [Suspect]
     Indication: HYPOTHALAMO-PITUITARY DISORDER
     Route: 058
  2. XANAX [Concomitant]
  3. NORVASC [Concomitant]
  4. ASPIRIN [Concomitant]
  5. ALEVE [Concomitant]
  6. NASONEX [Concomitant]
  7. PREMPRO [Concomitant]
  8. ALLEGRA [Concomitant]
  9. ALTACE [Concomitant]
  10. EDECRIN [Concomitant]
  11. VENTOLIN [Concomitant]
  12. HUMALOG MIX75/25 [Concomitant]

REACTIONS (4)
  - Diabetes mellitus [Unknown]
  - Hypertension [Unknown]
  - Sleep apnoea syndrome [Unknown]
  - Asthma [Unknown]
